FAERS Safety Report 4889844-X (Version None)
Quarter: 2006Q1

REPORT INFORMATION
  Report Type: 
  Country: None (occurrence: None)
  Receive Date: 20060124
  Receipt Date: 20050929
  Transmission Date: 20060701
  Serious: Yes (Hospitalization, Other)
  Sender: FDA-Public Use
  Company Number: US-MERCK-0510USA00178

PATIENT
  Age: 50 Year
  Sex: Female
  Weight: 46 kg

DRUGS (6)
  1. VIOXX [Suspect]
     Indication: CREUTZFELDT-JAKOB DISEASE
     Route: 048
  2. BUTISOL SODIUM [Concomitant]
     Route: 065
  3. FLEXERIL [Concomitant]
     Route: 065
  4. CELEBREX [Concomitant]
     Route: 065
  5. KLONOPIN [Concomitant]
     Route: 065
  6. VISTARIL [Concomitant]
     Route: 065

REACTIONS (29)
  - ANXIETY [None]
  - CANDIDIASIS [None]
  - CEREBROVASCULAR ACCIDENT [None]
  - CHEST PAIN [None]
  - CHRONIC OBSTRUCTIVE PULMONARY DISEASE [None]
  - CONVERSION DISORDER [None]
  - CONVULSION [None]
  - DEPRESSION [None]
  - DERMAL CYST [None]
  - DIFFICULTY IN WALKING [None]
  - DYSPNOEA [None]
  - FATIGUE [None]
  - HEADACHE [None]
  - HEAT STROKE [None]
  - INTENTIONAL DRUG MISUSE [None]
  - JOINT EFFUSION [None]
  - JOINT SPRAIN [None]
  - MUSCLE CONTRACTIONS INVOLUNTARY [None]
  - MYOCARDIAL INFARCTION [None]
  - MYOCLONUS [None]
  - OSTEITIS DEFORMANS [None]
  - OSTEOPENIA [None]
  - OSTEOPOROSIS [None]
  - OVERDOSE [None]
  - SINUSITIS [None]
  - SPEECH DISORDER [None]
  - SYNCOPE [None]
  - TREMOR [None]
  - UPPER MOTOR NEURONE LESION [None]
